FAERS Safety Report 12756295 (Version 2)
Quarter: 2016Q4

REPORT INFORMATION
  Report Type: Spontaneous
  Country: US (occurrence: US)
  Receive Date: 20160916
  Receipt Date: 20161024
  Transmission Date: 20170207
  Serious: No
  Sender: FDA-Public Use
  Company Number: US-PFIZER INC-2016429782

PATIENT
  Age: 68 Year
  Sex: Female
  Weight: 52 kg

DRUGS (7)
  1. PREMARIN [Suspect]
     Active Substance: ESTROGENS, CONJUGATED
     Indication: SJOGREN^S SYNDROME
     Dosage: 0.3 MG, 1X/DAY (0.3 MG, TABLET, ORALLY, ONCE A DAY)
     Route: 048
     Dates: start: 1995
  2. PREMARIN [Suspect]
     Active Substance: ESTROGENS, CONJUGATED
     Indication: LICHEN PLANUS
  3. PREMARIN [Suspect]
     Active Substance: ESTROGENS, CONJUGATED
     Indication: HORMONE REPLACEMENT THERAPY
  4. PREMARIN [Suspect]
     Active Substance: ESTROGENS, CONJUGATED
     Indication: LICHEN PLANUS
  5. PREMARIN [Suspect]
     Active Substance: ESTROGENS, CONJUGATED
     Indication: SJOGREN^S SYNDROME
     Dosage: 0.5 G, 2X/WEEK (0.5 GM, CREAM, TWICE A WEEK)
  6. SODIUM LAURYL SULPHATE [Suspect]
     Active Substance: SODIUM LAURYL SULFATE
  7. CLOBETASOL [Concomitant]
     Active Substance: CLOBETASOL
     Indication: VULVOVAGINAL DISCOMFORT
     Dosage: UNK, 2X/WEEK

REACTIONS (9)
  - Vaginal disorder [Unknown]
  - Atrophic vulvovaginitis [Unknown]
  - Vulvovaginal erythema [Not Recovered/Not Resolved]
  - Product use issue [Unknown]
  - Hair disorder [Not Recovered/Not Resolved]
  - Reaction to drug excipients [Unknown]
  - Vulvovaginal discomfort [Not Recovered/Not Resolved]
  - Vaginal lesion [Unknown]
  - Drug ineffective [Not Recovered/Not Resolved]
